FAERS Safety Report 4771308-5 (Version None)
Quarter: 2005Q3

REPORT INFORMATION
  Report Type: 
  Country: None (occurrence: None)
  Receive Date: 20050915
  Receipt Date: 20050414
  Transmission Date: 20060218
  Serious: Yes (Hospitalization, Disabling)
  Sender: FDA-Public Use
  Company Number: US-MERCK-0504USA02892

PATIENT
  Age: 46 Year
  Sex: Male
  Weight: 87 kg

DRUGS (3)
  1. VIOXX [Suspect]
     Indication: ARTHRITIS
     Route: 048
     Dates: start: 20000101, end: 20020707
  2. VIOXX [Suspect]
     Indication: BURSITIS
     Route: 048
     Dates: start: 20000101, end: 20020707
  3. TYLENOL [Suspect]
     Indication: PAIN
     Route: 065
     Dates: start: 19980601, end: 20050201

REACTIONS (5)
  - ABDOMINAL PAIN UPPER [None]
  - CEREBROVASCULAR ACCIDENT [None]
  - GASTROOESOPHAGEAL REFLUX DISEASE [None]
  - NAUSEA [None]
  - SLEEP APNOEA SYNDROME [None]
